FAERS Safety Report 14955704 (Version 1)
Quarter: 2018Q2

REPORT INFORMATION
  Report Type: Spontaneous
  Country: US (occurrence: US)
  Receive Date: 20180531
  Receipt Date: 20180531
  Transmission Date: 20180711
  Serious: Yes (Death, Hospitalization)
  Sender: FDA-Public Use
  Company Number: US-CIPLA (EU) LIMITED-2018US18614

PATIENT

DRUGS (11)
  1. DOPAMINE [Suspect]
     Active Substance: DOPAMINE\DOPAMINE HYDROCHLORIDE
     Dosage: UNK
     Route: 048
  2. LOSARTAN. [Suspect]
     Active Substance: LOSARTAN
     Dosage: UNK
     Route: 048
  3. HYDROCHLOROTHIAZIDE. [Suspect]
     Active Substance: HYDROCHLOROTHIAZIDE
     Dosage: UNK
     Route: 048
  4. ACETAMINOPHEN. [Suspect]
     Active Substance: ACETAMINOPHEN
     Dosage: UNK
     Route: 048
  5. IBUPROFEN                          /00109205/ [Suspect]
     Active Substance: IBUPROFEN
     Dosage: UNK
     Route: 048
  6. FENOFIBRATE. [Suspect]
     Active Substance: FENOFIBRATE
     Dosage: UNK
     Route: 048
  7. SIMVASTATIN. [Suspect]
     Active Substance: SIMVASTATIN
     Dosage: UNK
     Route: 048
  8. AMLODIPINE [Suspect]
     Active Substance: AMLODIPINE BESYLATE
     Dosage: UNK
     Route: 048
  9. NOREPINEPHRINE. [Suspect]
     Active Substance: NOREPINEPHRINE
     Dosage: UNK
     Route: 048
  10. CLONIDINE. [Suspect]
     Active Substance: CLONIDINE
     Dosage: UNK
     Route: 048
  11. INDOMETHACIN                       /00003801/ [Suspect]
     Active Substance: INDOMETHACIN
     Dosage: UNK
     Route: 048

REACTIONS (2)
  - Completed suicide [Fatal]
  - Toxicity to various agents [Fatal]
